FAERS Safety Report 8723475 (Version 6)
Quarter: 2013Q3

REPORT INFORMATION
  Report Type: Report from Study
  Country: ES (occurrence: ES)
  Receive Date: 20120814
  Receipt Date: 20130830
  Transmission Date: 20140515
  Serious: Yes (Hospitalization)
  Sender: FDA-Public Use
  Company Number: PHHO2010ES14019

PATIENT
  Age: 85 Year
  Sex: Male
  Weight: 60 kg

DRUGS (14)
  1. DIGOXIN [Suspect]
     Dates: end: 20100928
  2. PLACEBO [Suspect]
     Indication: CARDIOVASCULAR DISORDER
     Route: 048
     Dates: start: 20081117, end: 20100914
  3. PLACEBO [Suspect]
     Route: 048
     Dates: start: 20100928, end: 20111222
  4. GLICLAZIDE [Concomitant]
     Indication: DIABETES MELLITUS
  5. FUROSEMIDE [Concomitant]
     Indication: HYPERTENSION
     Dosage: 20 MG, ONCE/SINGLE
     Route: 048
     Dates: start: 20120710, end: 20120802
  6. FUROSEMIDE [Concomitant]
     Dosage: 40 MG, ONCE/SINGLE
     Route: 048
     Dates: start: 20120917
  7. SINTROM [Concomitant]
     Indication: ATRIAL FIBRILLATION
     Route: 048
     Dates: start: 20100928
  8. TAMSULOSIN [Concomitant]
     Indication: BENIGN PROSTATIC HYPERPLASIA
     Dosage: 0.4 MG, ONCE/SINGLE
     Route: 048
     Dates: start: 20120919
  9. INALADUO [Concomitant]
     Indication: BRONCHITIS CHRONIC
     Dosage: 1 DF, ONCE/SINGLE (50/100 BID)
     Dates: start: 20120129, end: 20121001
  10. LORAZEPAM [Concomitant]
     Indication: INSOMNIA
     Dosage: 1 MG, ONCE/SINGLE
     Route: 048
     Dates: start: 20070130
  11. LANTUS [Concomitant]
     Indication: DIABETES MELLITUS
     Dosage: 16 IU, ONCE/SINGLE
     Dates: start: 20100215
  12. LANTUS [Concomitant]
     Dosage: 8 IU, ONCE/SINGLE
     Dates: start: 20120917
  13. COZAAR PLUS [Concomitant]
     Indication: HYPERTENSION
  14. WARFARIN [Concomitant]

REACTIONS (7)
  - Atrial fibrillation [Recovered/Resolved]
  - Respiratory tract infection [Recovered/Resolved]
  - Dyspnoea [Recovered/Resolved]
  - Back pain [Recovered/Resolved]
  - Malaise [Recovered/Resolved]
  - Neck pain [Recovered/Resolved]
  - Diarrhoea [Unknown]
